FAERS Safety Report 7041486-6 (Version None)
Quarter: 2010Q4

REPORT INFORMATION
  Report Type: 
  Country: None (occurrence: None)
  Receive Date: 20101013
  Receipt Date: 20091124
  Transmission Date: 20110411
  Serious: No
  Sender: FDA-Public Use
  Company Number: US-ASTRAZENECA-2009SE28566

PATIENT
  Sex: Female
  Weight: 61.2 kg

DRUGS (3)
  1. SYMBICORT [Suspect]
     Indication: CHRONIC OBSTRUCTIVE PULMONARY DISEASE
     Dosage: TOTAL DAILY DOSAGE 640 MCG
     Route: 055
     Dates: start: 20091013
  2. STOOL SOFTENERS [Concomitant]
  3. SULFAXINE [Concomitant]

REACTIONS (2)
  - DYSPHONIA [None]
  - INCREASED UPPER AIRWAY SECRETION [None]
